FAERS Safety Report 13900475 (Version 1)
Quarter: 2017Q3

REPORT INFORMATION
  Report Type: Spontaneous
  Country: US (occurrence: US)
  Receive Date: 20170823
  Receipt Date: 20170823
  Transmission Date: 20171127
  Serious: Yes (Disabling)
  Sender: FDA-Public Use
  Company Number: US-BAUSCH-BL-2017-024594

PATIENT
  Sex: Male

DRUGS (1)
  1. XIFAXAN [Suspect]
     Active Substance: RIFAXIMIN
     Indication: PRODUCT USED FOR UNKNOWN INDICATION
     Route: 065

REACTIONS (13)
  - Walking aid user [Unknown]
  - Abdominal pain [Unknown]
  - Dysuria [Unknown]
  - Fatigue [Unknown]
  - Abdominal distension [Unknown]
  - Constipation [Unknown]
  - Gait disturbance [Unknown]
  - Joint swelling [Unknown]
  - Peripheral swelling [Unknown]
  - Nocturia [Unknown]
  - Depression [Unknown]
  - Weight increased [Unknown]
  - Flatulence [Unknown]
